FAERS Safety Report 8065798-2 (Version None)
Quarter: 2012Q1

REPORT INFORMATION
  Report Type: 
  Country: None (occurrence: None)
  Receive Date: 20120124
  Receipt Date: 20120119
  Transmission Date: 20120608
  Serious: Yes (Other)
  Sender: FDA-Public Use
  Company Number: AU-PFIZER INC-2012014754

PATIENT
  Age: 21 Year
  Sex: Female

DRUGS (1)
  1. VARENICLINE TARTRATE [Suspect]
     Indication: SMOKING CESSATION THERAPY
     Dosage: UNK
     Dates: start: 20120108, end: 20120116

REACTIONS (13)
  - ANTISOCIAL BEHAVIOUR [None]
  - AGGRESSION [None]
  - DIZZINESS [None]
  - SUICIDAL IDEATION [None]
  - DEPRESSION [None]
  - NAUSEA [None]
  - SLEEP DISORDER [None]
  - PARANOIA [None]
  - EMOTIONAL DISORDER [None]
  - PERSONALITY CHANGE [None]
  - NIGHTMARE [None]
  - SELF-INJURIOUS IDEATION [None]
  - PERSONALITY DISORDER [None]
